FAERS Safety Report 7788234-X (Version None)
Quarter: 2011Q3

REPORT INFORMATION
  Report Type: 
  Country: None (occurrence: None)
  Receive Date: 20110927
  Receipt Date: 20110913
  Transmission Date: 20111222
  Serious: Yes (Hospitalization)
  Sender: FDA-Public Use
  Company Number: 1000024171

PATIENT
  Age: 53 Year
  Sex: Male

DRUGS (10)
  1. KAYEXALATE [Suspect]
     Dosage: 0.4286 DF (3 DOSAGE FORMS, 1 IN 1 WK)
  2. CITALOPRAM HYDROBROMIDE [Suspect]
     Dosage: ORAL
     Route: 048
  3. CALCIUM CARBONATE [Suspect]
  4. RENAGEL [Suspect]
     Dosage: 1 DF (1 DOSAGE FORMS, 1 IN 1 D),ORAL
     Route: 048
  5. ARANESP [Suspect]
     Dosage: 0.0667 DF (2 DOSAGE FORMS,1 IN 1 M)
  6. CALCIPARINE [Suspect]
     Dosage: SUBCUTANEOUS
     Route: 058
     Dates: start: 20110708, end: 20110808
  7. PREDNISONE [Suspect]
     Dosage: 1  DF (1 DOSAGE FORMS, 1 IN 1 D),ORAL
     Route: 047
     Dates: start: 20110501
  8. LEVETIRACETAM [Concomitant]
  9. VALPROATE SODIUM [Suspect]
     Dosage: 2 DF (2 DOSAGE FORMS,L IN 1 D),ORAL
     Route: 048
     Dates: start: 20110716
  10. EUPRESSYL (URAPIDIL)(360 MILLIGRAM) [Suspect]
     Dosage: 3 DF (3 DOSAGE FORMS, 1 IN 1 D),ORAL
     Route: 048
     Dates: start: 20110529

REACTIONS (4)
  - RENAL IMPAIRMENT [None]
  - CREATININE RENAL CLEARANCE DECREASED [None]
  - THROMBOCYTOPENIA [None]
  - ANAEMIA [None]
